FAERS Safety Report 12865178 (Version 1)
Quarter: 2016Q4

REPORT INFORMATION
  Report Type: Report from Study
  Country: BR (occurrence: BR)
  Receive Date: 20161020
  Receipt Date: 20161020
  Transmission Date: 20170207
  Serious: Yes (Other)
  Sender: FDA-Public Use
  Company Number: PHHY2014BR143080

PATIENT
  Age: 53 Year
  Sex: Male
  Weight: 95 kg

DRUGS (2)
  1. SANDOSTATIN LAR DEPOT [Suspect]
     Active Substance: OCTREOTIDE ACETATE
     Indication: HEPATIC NEOPLASM
  2. SANDOSTATIN LAR DEPOT [Suspect]
     Active Substance: OCTREOTIDE ACETATE
     Indication: PANCREATIC NEUROENDOCRINE TUMOUR
     Dosage: 30 MG, QMO, MONTHLY, ONCE A MONTH
     Route: 030
     Dates: start: 2013

REACTIONS (14)
  - Nephrolithiasis [Unknown]
  - Peripheral swelling [Unknown]
  - Malaise [Recovering/Resolving]
  - Fall [Unknown]
  - Pain in extremity [Unknown]
  - Visual impairment [Unknown]
  - Limb injury [Unknown]
  - Feeling abnormal [Unknown]
  - Injection site pain [Unknown]
  - Diabetes mellitus [Unknown]
  - Pyrexia [Recovering/Resolving]
  - Pain [Recovering/Resolving]
  - Weight decreased [Unknown]
  - Pancreatic disorder [Unknown]

NARRATIVE: CASE EVENT DATE: 20141017
